FAERS Safety Report 8763819 (Version 1)
Quarter: 2012Q4

REPORT INFORMATION
  Report Type: Spontaneous
  Country: US (occurrence: None)
  Receive Date: 20120831
  Receipt Date: 20120831
  Transmission Date: 20130627
  Serious: Yes (Life-Threatening)
  Sender: FDA-Public Use
  Company Number: None

PATIENT
  Age: 60 Year
  Sex: Male
  Weight: 70.31 kg

DRUGS (1)
  1. CLINDAMYCIN [Suspect]
     Route: 048
     Dates: start: 20120823, end: 20120830

REACTIONS (3)
  - Blood pressure decreased [None]
  - Haemorrhoids [None]
  - Haemorrhoids [None]
